FAERS Safety Report 5463529-3 (Version None)
Quarter: 2007Q3

REPORT INFORMATION
  Report Type: 
  Country: None (occurrence: None)
  Receive Date: 20070920
  Receipt Date: 20070910
  Transmission Date: 20080115
  Serious: Yes (Hospitalization, Other)
  Sender: FDA-Public Use
  Company Number: US-PFIZER INC-2007076116

PATIENT
  Sex: Male

DRUGS (2)
  1. NEURONTIN [Suspect]
     Indication: NEUROPATHY
     Dates: start: 20040101, end: 20070101
  2. ANALGESICS [Concomitant]
     Indication: PAIN

REACTIONS (1)
  - GRAND MAL CONVULSION [None]
